FAERS Safety Report 4682996-6 (Version None)
Quarter: 2005Q2

REPORT INFORMATION
  Report Type: 
  Country: None (occurrence: None)
  Receive Date: 20050602
  Receipt Date: 20050322
  Transmission Date: 20051028
  Serious: No
  Sender: FDA-Public Use
  Company Number: USA050393810

PATIENT
  Age: 19 Year
  Sex: Female
  Weight: 54 kg

DRUGS (2)
  1. CYMBALTA [Suspect]
     Indication: DEPRESSION
     Dosage: 90 MG/AT DINNER TIME
     Dates: start: 20050101
  2. SYNTHROID [Concomitant]

REACTIONS (2)
  - INSOMNIA [None]
  - PRESCRIBED OVERDOSE [None]
